FAERS Safety Report 19077747 (Version 1)
Quarter: 2021Q1

REPORT INFORMATION
  Report Type: Spontaneous
  Country: CA (occurrence: CA)
  Receive Date: 20210331
  Receipt Date: 20210331
  Transmission Date: 20210420
  Serious: Yes (Other)
  Sender: FDA-Public Use
  Company Number: CA-PFIZER INC-2021324381

PATIENT
  Age: 51 Year
  Sex: Female

DRUGS (15)
  1. ARAVA [Concomitant]
     Active Substance: LEFLUNOMIDE
     Dosage: 20 MG, 1X/DAY
     Route: 048
  2. METHOTREXATE SODIUM. [Suspect]
     Active Substance: METHOTREXATE SODIUM
  3. MELOXICAM. [Concomitant]
     Active Substance: MELOXICAM
     Dosage: 7.5 MG, 2X/DAY
     Route: 048
  4. MORPHINE [Concomitant]
     Active Substance: MORPHINE
  5. CALCIUM [Concomitant]
     Active Substance: CALCIUM
     Dosage: 500 MG, 2X/DAY
     Route: 048
  6. PLAQUENIL [Concomitant]
     Active Substance: HYDROXYCHLOROQUINE SULFATE
     Dosage: 400 MG, 1X/DAY
     Route: 048
  7. ENBREL [Concomitant]
     Active Substance: ETANERCEPT
     Dosage: 500 MG, WEEKLY
     Route: 058
  8. JAMP?PANTOPRAZOLE [Concomitant]
     Dosage: 40 MG, 1X/DAY
     Route: 048
  9. CELEBREX [Concomitant]
     Active Substance: CELECOXIB
     Dosage: 200 MG, 2X/DAY
  10. VITAMIN D3 [Concomitant]
     Active Substance: CHOLECALCIFEROL
     Dosage: 10000 IU, WEEKLY
     Route: 048
  11. XELJANZ [Concomitant]
     Active Substance: TOFACITINIB CITRATE
     Indication: PSORIATIC ARTHROPATHY
     Dosage: 5 MG, 2X/DAY
     Route: 048
  12. APO?CYCLOBENZAPRINE [Concomitant]
     Active Substance: CYCLOBENZAPRINE
     Dosage: 10 MG
     Route: 048
  13. ELAVIL [ALLOPURINOL] [Concomitant]
     Active Substance: ALLOPURINOL
     Dosage: 25 MG
     Route: 048
  14. COSENTYX [Suspect]
     Active Substance: SECUKINUMAB
  15. METHOTREXATE. [Concomitant]
     Active Substance: METHOTREXATE
     Route: 065

REACTIONS (3)
  - Psoriatic arthropathy [Unknown]
  - Drug intolerance [Unknown]
  - Mouth ulceration [Unknown]
